FAERS Safety Report 9496833 (Version 1)
Quarter: 2013Q3

REPORT INFORMATION
  Report Type: Spontaneous
  Country: FR (occurrence: None)
  Receive Date: 20130830
  Receipt Date: 20130830
  Transmission Date: 20140515
  Serious: Yes (Hospitalization)
  Sender: FDA-Public Use
  Company Number: 7233629

PATIENT
  Age: 58 Year
  Sex: Female

DRUGS (7)
  1. LEVOTHYROXINE [Suspect]
     Indication: PRODUCT USED FOR UNKNOWN INDICATION
     Dosage: LONG-TERM - ONGOING
     Route: 048
  2. MABTHERA [Suspect]
     Indication: PRODUCT USED FOR UNKNOWN INDICATION
     Dosage: INTRAVENOUS (NOT OTHERWISE SPECIFIED)
     Route: 042
     Dates: start: 20130618, end: 20130618
  3. BACTRIM [Suspect]
     Indication: PROPHYLAXIS
     Route: 048
     Dates: start: 2012, end: 20130724
  4. SPECIAFOLDINE [Suspect]
     Indication: PRODUCT USED FOR UNKNOWN INDICATION
     Dosage: 3 DF (1 DF, 3 IN 1 D)
     Route: 048
     Dates: start: 2012
  5. ZELITREX [Suspect]
     Dosage: 2 DF (1 DF, 2 IN 1 D)
     Route: 048
     Dates: start: 2012
  6. SOLU MEDROL [Suspect]
     Indication: PRODUCT USED FOR UNKNOWN INDICATION
     Dosage: 1 DF (1 DF, 1 IN 1 D), INTRAVENOUS (NOT OTHERWISE SPECIFIED)
     Route: 042
     Dates: start: 20130618, end: 20130618
  7. CORTANCYL [Suspect]
     Indication: PRODUCT USED FOR UNKNOWN INDICATION
     Route: 048
     Dates: start: 20130618, end: 20130703

REACTIONS (4)
  - Leukopenia [None]
  - Neutropenia [None]
  - Autoimmune haemolytic anaemia [None]
  - Toxicity to various agents [None]
